FAERS Safety Report 15762328 (Version 3)
Quarter: 2020Q1

REPORT INFORMATION
  Report Type: Spontaneous
  Country: US (occurrence: US)
  Receive Date: 20181226
  Receipt Date: 20200102
  Transmission Date: 20200409
  Serious: Yes (Death, Hospitalization)
  Sender: FDA-Public Use
  Company Number: US-JNJFOC-20181226472

PATIENT
  Age: 53 Year
  Sex: Female

DRUGS (1)
  1. XARELTO [Suspect]
     Active Substance: RIVAROXABAN
     Indication: PULMONARY EMBOLISM
     Route: 048
     Dates: start: 20160625, end: 201705

REACTIONS (3)
  - Gastrointestinal haemorrhage [Recovering/Resolving]
  - Death [Fatal]
  - Transient ischaemic attack [Unknown]

NARRATIVE: CASE EVENT DATE: 20161030
